FAERS Safety Report 5779353-8 (Version None)
Quarter: 2008Q2

REPORT INFORMATION
  Report Type: 
  Country: None (occurrence: None)
  Receive Date: 20080619
  Receipt Date: 20080602
  Transmission Date: 20081010
  Serious: No
  Sender: FDA-Public Use
  Company Number: US-BOEHRINGER INGELHEIM GMBH, GERMANY-2008-BP-08592BP

PATIENT
  Age: 51 Year
  Sex: Female

DRUGS (7)
  1. MIRAPEX [Suspect]
     Indication: RESTLESS LEGS SYNDROME
     Dates: start: 20080101, end: 20080101
  2. LEXAPRO [Suspect]
     Indication: ANXIETY
     Route: 048
     Dates: start: 20080101, end: 20080101
  3. LEXAPRO [Suspect]
     Indication: DEPRESSION
  4. XANAX [Concomitant]
  5. KLONOPIN [Concomitant]
  6. SOMA [Concomitant]
  7. VISTARIL [Concomitant]

REACTIONS (1)
  - NAUSEA [None]
